FAERS Safety Report 14775855 (Version 1)
Quarter: 2018Q2

REPORT INFORMATION
  Report Type: Report from Study
  Country: US (occurrence: US)
  Receive Date: 20180418
  Receipt Date: 20180418
  Transmission Date: 20180711
  Serious: Yes (Other)
  Sender: FDA-Public Use
  Company Number: US-CELGENEUS-USA-20180403628

PATIENT
  Age: 86 Year
  Sex: Male
  Weight: 55.84 kg

DRUGS (2)
  1. REVLIMID [Suspect]
     Active Substance: LENALIDOMIDE
     Indication: CHRONIC LYMPHOCYTIC LEUKAEMIA
     Dosage: 2.5 MILLIGRAM
     Route: 048
     Dates: start: 20110428, end: 20130429
  2. ALLOPURINOL. [Concomitant]
     Active Substance: ALLOPURINOL
     Indication: SUPPORTIVE CARE
     Route: 065

REACTIONS (1)
  - Pancreatic carcinoma [Recovered/Resolved]

NARRATIVE: CASE EVENT DATE: 20140703
